FAERS Safety Report 13517494 (Version 1)
Quarter: 2017Q2

REPORT INFORMATION
  Report Type: Report from Study
  Country: GB (occurrence: GB)
  Receive Date: 20170505
  Receipt Date: 20170505
  Transmission Date: 20170830
  Serious: Yes (Other)
  Sender: FDA-Public Use
  Company Number: GB-MYLANLABS-2017M1026893

PATIENT

DRUGS (4)
  1. EUMOVATE [Interacting]
     Active Substance: CLOBETASONE BUTYRATE
     Indication: HIV INFECTION
     Route: 061
  2. LOPINAVIR/RITONAVIR [Suspect]
     Active Substance: LOPINAVIR\RITONAVIR
     Indication: HIV INFECTION
     Route: 065
  3. FLUOCINOLONE ACETONIDE. [Interacting]
     Active Substance: FLUOCINOLONE ACETONIDE
     Indication: HIV INFECTION
     Route: 061
  4. LAMIVUDINE. [Concomitant]
     Active Substance: LAMIVUDINE
     Indication: HIV INFECTION
     Route: 065

REACTIONS (2)
  - Secondary adrenocortical insufficiency [Recovering/Resolving]
  - Drug interaction [Recovering/Resolving]
